FAERS Safety Report 13931740 (Version 1)
Quarter: 2017Q3

REPORT INFORMATION
  Report Type: Spontaneous
  Country: US (occurrence: US)
  Receive Date: 20170904
  Receipt Date: 20170904
  Transmission Date: 20171127
  Serious: No
  Sender: FDA-Public Use
  Company Number: US-009507513-1708USA013027

PATIENT
  Age: 63 Year
  Sex: Male

DRUGS (5)
  1. LEXAPRO [Concomitant]
     Active Substance: ESCITALOPRAM OXALATE
  2. PRINIVIL [Concomitant]
     Active Substance: LISINOPRIL
     Route: 065
  3. ATIVAN [Concomitant]
     Active Substance: LORAZEPAM
  4. BELSOMRA [Suspect]
     Active Substance: SUVOREXANT
     Indication: ANXIETY
     Dosage: 20 MG, QD
     Route: 048
     Dates: start: 20170827
  5. METOPROLOL. [Concomitant]
     Active Substance: METOPROLOL

REACTIONS (1)
  - Diarrhoea [Unknown]

NARRATIVE: CASE EVENT DATE: 20170827
